FAERS Safety Report 8083003-8 (Version None)
Quarter: 2012Q1

REPORT INFORMATION
  Report Type: 
  Country: None (occurrence: None)
  Receive Date: 20120127
  Receipt Date: 20110309
  Transmission Date: 20120608
  Serious: No
  Sender: FDA-Public Use
  Company Number: US-ABBOTT-11P-163-0710540-00

PATIENT
  Sex: Female

DRUGS (5)
  1. HUMIRA [Suspect]
     Indication: RHEUMATOID ARTHRITIS
     Dates: start: 20100101
  2. KETOCONAZOLE [Concomitant]
     Indication: RASH
     Dates: start: 20101201
  3. KETOCONAZOLE [Concomitant]
     Indication: PRURITUS
  4. PRAMOSONE [Concomitant]
     Indication: RASH
     Dates: start: 20101201
  5. PRAMOSONE [Concomitant]
     Indication: PRURITUS

REACTIONS (2)
  - PRURITUS [None]
  - RASH [None]
